FAERS Safety Report 12724330 (Version 1)
Quarter: 2016Q3

REPORT INFORMATION
  Report Type: Spontaneous
  Country: US (occurrence: US)
  Receive Date: 20160908
  Receipt Date: 20160908
  Transmission Date: 20161109
  Serious: No
  Sender: FDA-Public Use
  Company Number: US-FERRINGPH-2015FE03196

PATIENT
  Sex: Male
  Weight: 107.48 kg

DRUGS (3)
  1. PREPOPIK [Suspect]
     Active Substance: ANHYDROUS CITRIC ACID\MAGNESIUM OXIDE\SODIUM PICOSULFATE
     Indication: BOWEL PREPARATION
     Dosage: UNK
     Route: 048
     Dates: start: 20150914, end: 20150914
  2. LOSARTAN. [Concomitant]
     Active Substance: LOSARTAN
     Dosage: 100/25MG HALF TABLET
  3. METOPROLOL. [Concomitant]
     Active Substance: METOPROLOL
     Dosage: 25 MG, HALF TAB

REACTIONS (1)
  - Drug ineffective [Unknown]
